FAERS Safety Report 9486232 (Version 1)
Quarter: 2013Q3

REPORT INFORMATION
  Report Type: Spontaneous
  Country: FR (occurrence: FR)
  Receive Date: 20130829
  Receipt Date: 20130829
  Transmission Date: 20140515
  Serious: Yes (Hospitalization)
  Sender: FDA-Public Use
  Company Number: FR-PFIZER INC-2013247932

PATIENT
  Age: 76 Year
  Sex: Female

DRUGS (8)
  1. EUPANTOL [Suspect]
     Dosage: UNK
     Route: 048
     Dates: end: 20130709
  2. GLIVEC [Suspect]
     Dosage: 400 MG, UNK
     Route: 065
     Dates: end: 20130709
  3. ALLOPURINOL [Suspect]
     Dosage: 200 MG, 1X/DAY
     Route: 048
     Dates: end: 20130709
  4. LAMALINE [Suspect]
     Dosage: 3 DF, 1X/DAY
     Route: 048
     Dates: end: 20130707
  5. STILNOX [Suspect]
     Dosage: UNK
     Route: 048
     Dates: end: 20130709
  6. DUROGESIC [Concomitant]
     Dosage: 75 MG/H, DAILY
     Route: 062
  7. OXYCODONE [Concomitant]
     Dosage: 5 MG, UNK
     Route: 048
  8. FOSAVANCE [Concomitant]
     Dosage: 70 MG, WEEKLY
     Route: 048

REACTIONS (3)
  - Blister [Not Recovered/Not Resolved]
  - Erythema [Not Recovered/Not Resolved]
  - Skin exfoliation [Unknown]
